FAERS Safety Report 19269357 (Version 2)
Quarter: 2021Q2

REPORT INFORMATION
  Report Type: Report from Study
  Country: CA (occurrence: CA)
  Receive Date: 20210517
  Receipt Date: 20210524
  Transmission Date: 20210717
  Serious: Yes (Other)
  Sender: FDA-Public Use
  Company Number: CA-JNJFOC-20200329031

PATIENT
  Age: 42 Year
  Sex: Female
  Weight: 152.5 kg

DRUGS (3)
  1. REMICADE [Suspect]
     Active Substance: INFLIXIMAB
     Indication: CRYOGLOBULINAEMIA
     Route: 042
     Dates: start: 20191126, end: 20200106
  2. PREDNISONE. [Concomitant]
     Active Substance: PREDNISONE
     Indication: PRODUCT USED FOR UNKNOWN INDICATION
     Route: 048
  3. REMICADE [Suspect]
     Active Substance: INFLIXIMAB
     Indication: PYODERMA GANGRENOSUM

REACTIONS (6)
  - Cryoglobulinaemia [Unknown]
  - Decreased immune responsiveness [Unknown]
  - Illness [Unknown]
  - Nausea [Unknown]
  - Pyoderma gangrenosum [Unknown]
  - Abdominal distension [Unknown]

NARRATIVE: CASE EVENT DATE: 202001
